FAERS Safety Report 15802532 (Version 1)
Quarter: 2019Q1

REPORT INFORMATION
  Report Type: Spontaneous
  Country: US (occurrence: US)
  Receive Date: 20190103
  Receipt Date: 20190103
  Transmission Date: 20190417
  Serious: No
  Sender: FDA-Public Use
  Company Number: None

PATIENT

DRUGS (2)
  1. ELIQUIS [Suspect]
     Active Substance: APIXABAN
  2. HEPARIN [Suspect]
     Active Substance: HEPARIN SODIUM

REACTIONS (3)
  - Drug monitoring procedure not performed [None]
  - Factor Xa activity increased [None]
  - False positive investigation result [None]
